FAERS Safety Report 5298083-2 (Version None)
Quarter: 2007Q2

REPORT INFORMATION
  Report Type: 
  Country: None (occurrence: None)
  Receive Date: 20070416
  Receipt Date: 20070403
  Transmission Date: 20071010
  Serious: Yes (Other)
  Sender: FDA-Public Use
  Company Number: PHRM2007FR01201

PATIENT
  Age: 72 Year
  Sex: Male

DRUGS (3)
  1. DISTILBENE [Concomitant]
  2. DECAPEPTYL                              /SCH/ [Concomitant]
  3. ZOMETA [Suspect]
     Indication: BONE NEOPLASM MALIGNANT
     Dosage: 4 MG, QMO
     Route: 042
     Dates: start: 20070322, end: 20070322

REACTIONS (6)
  - ANOREXIA [None]
  - DIZZINESS [None]
  - HALLUCINATION, VISUAL [None]
  - INSOMNIA [None]
  - NAUSEA [None]
  - WEIGHT DECREASED [None]
